FAERS Safety Report 16771459 (Version 3)
Quarter: 2019Q4

REPORT INFORMATION
  Report Type: Spontaneous
  Country: US (occurrence: US)
  Receive Date: 20190904
  Receipt Date: 20191023
  Transmission Date: 20200122
  Serious: No
  Sender: FDA-Public Use
  Company Number: US-PFIZER INC-2019378180

PATIENT
  Age: 65 Year
  Sex: Male
  Weight: 103.87 kg

DRUGS (2)
  1. GABAPENTIN. [Suspect]
     Active Substance: GABAPENTIN
     Indication: NERVE INJURY
     Dosage: 4 DF (CAPSULES), 3X/DAY
     Route: 048
     Dates: start: 201711
  2. GABAPENTIN. [Suspect]
     Active Substance: GABAPENTIN
     Indication: NEURALGIA
     Dosage: UNK (600/600/900)
     Route: 048
     Dates: start: 201801, end: 20190103

REACTIONS (6)
  - Pain [Recovered/Resolved]
  - Drug ineffective for unapproved indication [Unknown]
  - Fluid retention [Unknown]
  - Off label use [Unknown]
  - Oedema [Recovered/Resolved]
  - Drug hypersensitivity [Unknown]

NARRATIVE: CASE EVENT DATE: 201711
